FAERS Safety Report 13575439 (Version 1)
Quarter: 2017Q2

REPORT INFORMATION
  Report Type: Spontaneous
  Country: ES (occurrence: ES)
  Receive Date: 20170524
  Receipt Date: 20170524
  Transmission Date: 20170830
  Serious: Yes (Other)
  Sender: FDA-Public Use
  Company Number: ES-ROCHE-1938515

PATIENT
  Age: 77 Year
  Sex: Female

DRUGS (1)
  1. HERCEPTIN [Suspect]
     Active Substance: TRASTUZUMAB
     Indication: BREAST CANCER
     Dosage: 600 MG/5ML SOLUCION INYECTABLE 1 VIAL, 5 ML
     Route: 058
     Dates: start: 20170512, end: 20170512

REACTIONS (3)
  - Nervousness [Recovered/Resolved]
  - Neck pain [Recovered/Resolved]
  - Respiratory distress [Recovered/Resolved]

NARRATIVE: CASE EVENT DATE: 20170512
